FAERS Safety Report 5689534-X (Version None)
Quarter: 2008Q1

REPORT INFORMATION
  Report Type: 
  Country: None (occurrence: None)
  Receive Date: 20080331
  Receipt Date: 20080321
  Transmission Date: 20080703
  Serious: Yes (Other)
  Sender: FDA-Public Use
  Company Number: GB-PFIZER INC-2008026471

PATIENT
  Age: 54 Year
  Sex: Male
  Weight: 75 kg

DRUGS (11)
  1. CHAMPIX [Suspect]
     Indication: SMOKING CESSATION THERAPY
     Route: 048
  2. ACETYLSALICYLIC ACID SRT [Concomitant]
     Indication: ANTICOAGULANT THERAPY
     Route: 048
  3. AVENA [Concomitant]
  4. BUPRENORPHINE HCL [Concomitant]
     Indication: PAIN
     Route: 062
  5. CHLORTHALIDONE [Concomitant]
     Indication: HYPERTENSION
     Route: 048
  6. CO-CODAMOL [Concomitant]
     Route: 048
  7. GABAPENTIN [Concomitant]
     Route: 048
  8. GLYCERYL TRINITRATE [Concomitant]
  9. MOMETASONE FUROATE [Concomitant]
     Route: 045
  10. SIMVASTATIN [Concomitant]
     Indication: HYPERCHOLESTEROLAEMIA
     Route: 048
  11. SUSTANON [Concomitant]

REACTIONS (3)
  - AGGRESSION [None]
  - ANGER [None]
  - IRRITABILITY [None]
